FAERS Safety Report 15633221 (Version 6)
Quarter: 2020Q2

REPORT INFORMATION
  Report Type: Report from Study
  Country: CN (occurrence: CN)
  Receive Date: 20181119
  Receipt Date: 20200414
  Transmission Date: 20200713
  Serious: Yes (Hospitalization)
  Sender: FDA-Public Use
  Company Number: CN-AMGEN-CHNCT2018151982

PATIENT
  Age: 42 Year
  Sex: Female
  Weight: 48.5 kg

DRUGS (11)
  1. ETELCALCETIDE [Suspect]
     Active Substance: ETELCALCETIDE
     Indication: HYPERPARATHYROIDISM SECONDARY
     Dosage: 5 MILLIGRAM
     Route: 065
     Dates: start: 20180718
  2. AZITHROMYCIN ANHYDROUS. [Concomitant]
     Active Substance: AZITHROMYCIN ANHYDROUS
     Dosage: 0.5 GRAM
     Route: 048
     Dates: start: 20180815, end: 20180820
  3. MUPIROCIN. [Concomitant]
     Active Substance: MUPIROCIN
     Dosage: UNK
     Route: 061
     Dates: start: 20180827, end: 20181101
  4. RECOMBINANT HUMAN ERYTHROPOIETIN [Concomitant]
     Active Substance: ERYTHROPOIETIN
     Dosage: 6000 INTERNATIONAL UNIT
     Route: 058
     Dates: start: 20180815, end: 20181015
  5. CAFFEINE W/CHLORPHENAMINE/PARACETAMOL [Concomitant]
     Dosage: 1 UNK
     Route: 048
     Dates: start: 20180826, end: 20180828
  6. ARTIFICIAL COW BEZOAR [Concomitant]
     Dosage: 1 UNK
     Route: 048
     Dates: start: 20180826, end: 20180828
  7. CALCIUM CARBONATE/VITAMIN D3 [Concomitant]
     Active Substance: CALCIUM CARBONATE\CHOLECALCIFEROL
     Dosage: 1 (1.25G/200IU) UNK, UNK
     Route: 048
     Dates: start: 20180728, end: 20180813
  8. AMBROXOL [Concomitant]
     Active Substance: AMBROXOL
     Dosage: 1 UNK
     Route: 048
     Dates: start: 20180827, end: 20180829
  9. CALCIUM + VITAMIN D [Concomitant]
     Active Substance: CALCIUM\VITAMIN D
     Dosage: 0.6-1 GRAM
     Route: 048
     Dates: start: 20180814, end: 20181121
  10. ROXITHROMYCIN [Concomitant]
     Active Substance: ROXITHROMYCIN
     Dosage: 1 UNK
     Route: 048
     Dates: start: 20180827, end: 20180829
  11. HEPARIN SODIUM. [Concomitant]
     Active Substance: HEPARIN SODIUM
     Dosage: 20.5-32.5 MILLIGRAM
     Route: 042
     Dates: start: 20180808, end: 20181015

REACTIONS (2)
  - Device related infection [Recovered/Resolved]
  - Peritonitis [Recovered/Resolved]

NARRATIVE: CASE EVENT DATE: 20181026
